FAERS Safety Report 7288772-2 (Version None)
Quarter: 2011Q1

REPORT INFORMATION
  Report Type: 
  Country: None (occurrence: None)
  Receive Date: 20110211
  Receipt Date: 20110203
  Transmission Date: 20110831
  Serious: Yes (Other)
  Sender: FDA-Public Use
  Company Number: CA-TEVA-266002USA

PATIENT
  Sex: Female

DRUGS (13)
  1. ATORVASTATIN CALCIUM [Concomitant]
     Indication: BLOOD CHOLESTEROL
     Dates: start: 19990101
  2. MULTIVITAMIN [Concomitant]
  3. OMEGA 3-6-9 [Concomitant]
  4. CYCLOSPORINE [Suspect]
  5. ALLOPURINOL [Concomitant]
     Indication: GOUT
     Dates: start: 19900101
  6. JOINT FOOD [Concomitant]
  7. RISEDRONATE SODIUM [Concomitant]
     Dates: start: 20070830, end: 20101001
  8. DILTIAZEM HCL [Suspect]
     Dates: end: 20101115
  9. SIROLIMUS [Concomitant]
     Route: 048
  10. RISEDRONATE SODIUM [Concomitant]
     Indication: BONE DISORDER
     Dates: start: 20101030
  11. CANDESARTAN CILEXETIL [Concomitant]
     Indication: BLOOD PRESSURE
     Dates: start: 19970320
  12. PREDNISONE [Concomitant]
     Dates: start: 19970116
  13. ERGOCALCIFEROL [Concomitant]

REACTIONS (3)
  - RASH [None]
  - LIMB DISCOMFORT [None]
  - KAPOSI'S SARCOMA [None]
